FAERS Safety Report 10975347 (Version 2)
Quarter: 2015Q3

REPORT INFORMATION
  Report Type: Spontaneous
  Country: US (occurrence: US)
  Receive Date: 20150401
  Receipt Date: 20150707
  Transmission Date: 20151125
  Serious: No
  Sender: FDA-Public Use
  Company Number: US-ASTRAZENECA-2005BM01889

PATIENT
  Age: 18809 Day
  Sex: Female
  Weight: 158.8 kg

DRUGS (10)
  1. NATURE-THROID [Concomitant]
     Active Substance: THYROID, PORCINE
  2. VITAMIN A [Concomitant]
     Active Substance: VITAMIN A
  3. VITAMIN B [Concomitant]
     Active Substance: VITAMIN B
  4. BYETTA [Suspect]
     Active Substance: EXENATIDE
     Indication: TYPE 2 DIABETES MELLITUS
     Route: 058
     Dates: start: 20050907
  5. BYDUREON [Suspect]
     Active Substance: EXENATIDE
     Indication: TYPE 2 DIABETES MELLITUS
     Route: 058
     Dates: start: 20150320
  6. GLUCOPHAGE [Concomitant]
     Active Substance: METFORMIN HYDROCHLORIDE
     Indication: TYPE 2 DIABETES MELLITUS
     Dosage: 1000 MG, TID BMS NON AZ
     Route: 048
     Dates: start: 2000
  7. KELP [Concomitant]
     Active Substance: KELP
  8. CLEANSMORE [Concomitant]
  9. VITAMIN D [Concomitant]
     Active Substance: CHOLECALCIFEROL
  10. ADRENAL [Concomitant]
     Active Substance: EPINEPHRINE

REACTIONS (13)
  - Nausea [Recovered/Resolved]
  - Dizziness [Not Recovered/Not Resolved]
  - Constipation [Unknown]
  - Decreased appetite [Recovered/Resolved]
  - Asthenia [Unknown]
  - Device use error [Unknown]
  - Abdominal distension [Unknown]
  - Weight fluctuation [Unknown]
  - Alopecia [Unknown]
  - Needle issue [Unknown]
  - Headache [Not Recovered/Not Resolved]
  - Malaise [Unknown]
  - Underdose [Unknown]

NARRATIVE: CASE EVENT DATE: 20050907
